FAERS Safety Report 4759418-X (Version None)
Quarter: 2005Q3

REPORT INFORMATION
  Report Type: 
  Country: None (occurrence: None)
  Receive Date: 20050901
  Receipt Date: 20050824
  Transmission Date: 20060218
  Serious: Yes (Hospitalization)
  Sender: FDA-Public Use
  Company Number: CH-ABBOTT-05P-151-0309415-00

PATIENT
  Age: 74 Year
  Sex: Female

DRUGS (4)
  1. DEPAKENE [Suspect]
     Indication: EPILEPSY
     Route: 048
     Dates: end: 20050501
  2. ASPIRIN [Suspect]
     Indication: DRUG USE FOR UNKNOWN INDICATION
     Route: 048
     Dates: end: 20050501
  3. TOPIRAMATE [Concomitant]
     Indication: DRUG USE FOR UNKNOWN INDICATION
     Route: 048
  4. LISINOPRIL [Concomitant]
     Indication: DRUG USE FOR UNKNOWN INDICATION
     Route: 048

REACTIONS (9)
  - ANAEMIA [None]
  - DIZZINESS [None]
  - EPISTAXIS [None]
  - GASTRITIS EROSIVE [None]
  - GASTRITIS HAEMORRHAGIC [None]
  - HIATUS HERNIA [None]
  - HYPOTENSION [None]
  - METAPLASIA [None]
  - THROMBOCYTOPENIA [None]
